FAERS Safety Report 4487337-5 (Version None)
Quarter: 2004Q4

REPORT INFORMATION
  Report Type: 
  Country: None (occurrence: None)
  Receive Date: 20041027
  Receipt Date: 20031202
  Transmission Date: 20050328
  Serious: Yes (Hospitalization, Other)
  Sender: FDA-Public Use
  Company Number: FR-MERCK-0312FRA00041

PATIENT
  Age: 31 Year
  Sex: Female

DRUGS (2)
  1. FOSAMAX [Suspect]
     Indication: BONE DENSITY DECREASED
     Route: 048
     Dates: start: 20030401, end: 20030804
  2. ESTRADIOL [Concomitant]
     Indication: AMENORRHOEA
     Route: 065
     Dates: start: 19990101, end: 20030804

REACTIONS (4)
  - CAESAREAN SECTION [None]
  - DRUG EXPOSURE DURING PREGNANCY [None]
  - OSTEOPOROSIS [None]
  - PREGNANCY [None]
